FAERS Safety Report 12961754 (Version 2)
Quarter: 2016Q4

REPORT INFORMATION
  Report Type: Spontaneous
  Country: US (occurrence: US)
  Receive Date: 20161121
  Receipt Date: 20161209
  Transmission Date: 20170207
  Serious: No
  Sender: FDA-Public Use
  Company Number: US-GILEAD-2016-0243953

PATIENT
  Age: 71 Year
  Sex: Male

DRUGS (1)
  1. HARVONI [Suspect]
     Active Substance: LEDIPASVIR\SOFOSBUVIR
     Indication: CHRONIC HEPATITIS C
     Dosage: 1 DF, UNK
     Route: 048
     Dates: start: 20160922

REACTIONS (2)
  - International normalised ratio increased [Unknown]
  - Prothrombin time prolonged [Unknown]

NARRATIVE: CASE EVENT DATE: 20161112
